FAERS Safety Report 4303214-4 (Version None)
Quarter: 2004Q1

REPORT INFORMATION
  Report Type: 
  Country: None (occurrence: None)
  Receive Date: 20040224
  Receipt Date: 20031117
  Transmission Date: 20041129
  Serious: Yes (Death, Life-Threatening, Hospitalization)
  Sender: FDA-Public Use
  Company Number: US-BRISTOL-MYERS SQUIBB COMPANY-12437687

PATIENT
  Age: 71 Year
  Sex: Male
  Weight: 36 kg

DRUGS (14)
  1. REYATAZ [Suspect]
     Indication: HIV INFECTION
     Route: 048
     Dates: start: 20030729, end: 20031110
  2. VIDEX EC [Suspect]
     Route: 048
     Dates: start: 20030715, end: 20031110
  3. NORVIR [Concomitant]
     Dosage: SOFT GELL CAPSULE
     Route: 048
  4. VIREAD [Concomitant]
  5. EPIVIR [Concomitant]
  6. NEXIUM [Concomitant]
  7. TRICOR [Concomitant]
  8. VASOTEC [Concomitant]
  9. OCUVITE [Concomitant]
  10. ACYCLOVIR [Concomitant]
  11. METROGEL [Concomitant]
     Route: 061
  12. CORTISONE ACETATE [Concomitant]
     Route: 061
  13. CHLORHEXIDINE [Concomitant]
  14. MULTI-VITAMIN [Concomitant]

REACTIONS (2)
  - LACTIC ACIDOSIS [None]
  - MULTI-ORGAN FAILURE [None]
